FAERS Safety Report 5571376-7 (Version None)
Quarter: 2007Q4

REPORT INFORMATION
  Report Type: 
  Country: None (occurrence: None)
  Receive Date: 20071221
  Receipt Date: 20070907
  Transmission Date: 20080405
  Serious: No
  Sender: FDA-Public Use
  Company Number: A0679706A

PATIENT
  Age: 60 Year
  Sex: Male

DRUGS (2)
  1. FLONASE [Suspect]
     Dosage: 50MCG PER DAY
     Route: 045
  2. NO CONCURRENT MEDICATION [Concomitant]

REACTIONS (4)
  - AGEUSIA [None]
  - ANOSMIA [None]
  - NASAL ODOUR [None]
  - NASAL POLYPS [None]
